FAERS Safety Report 6837619-4 (Version None)
Quarter: 2010Q3

REPORT INFORMATION
  Report Type: 
  Country: None (occurrence: None)
  Receive Date: 20100708
  Receipt Date: 20100628
  Transmission Date: 20110219
  Serious: Yes (Disabling)
  Sender: FDA-Public Use
  Company Number: THQ2010A01632

PATIENT
  Age: 50 Year
  Sex: Female

DRUGS (2)
  1. LANSOPRAZOLE [Suspect]
     Indication: NAUSEA
     Dates: start: 20100320, end: 20100417
  2. OMEPRAZOLE [Suspect]
     Indication: NAUSEA
     Route: 048
     Dates: start: 20100420, end: 20100510

REACTIONS (2)
  - PHOTOSENSITIVITY REACTION [None]
  - SKIN REACTION [None]
